FAERS Safety Report 7768869-0 (Version None)
Quarter: 2011Q3

REPORT INFORMATION
  Report Type: 
  Country: None (occurrence: None)
  Receive Date: 20110922
  Receipt Date: 20110308
  Transmission Date: 20111222
  Serious: No
  Sender: FDA-Public Use
  Company Number: US-ASTRAZENECA-2011SE13002

PATIENT
  Age: 61 Year
  Sex: Female
  Weight: 62.1 kg

DRUGS (11)
  1. CYMBALTA [Concomitant]
     Indication: BIPOLAR DISORDER
     Route: 048
  2. NEURONTIN [Concomitant]
     Route: 048
  3. SYMBICORT [Suspect]
     Route: 055
  4. PROAIR HFA [Concomitant]
     Route: 055
  5. SEROQUEL [Suspect]
     Indication: BIPOLAR DISORDER
     Dosage: 100 MG IN THE MORNING, 200 MG IN THE EVENING, 600 MG AT BEDTIME
     Route: 048
     Dates: start: 20000101
  6. ZOLOFT [Concomitant]
     Indication: BIPOLAR DISORDER
     Route: 048
  7. REQUIP [Concomitant]
     Route: 048
  8. FLOVENT [Concomitant]
     Indication: CHRONIC OBSTRUCTIVE PULMONARY DISEASE
     Route: 055
  9. ALBUTEROL [Concomitant]
     Indication: CHRONIC OBSTRUCTIVE PULMONARY DISEASE
     Route: 055
  10. BONIVA [Concomitant]
  11. ATROVENT [Concomitant]
     Indication: CHRONIC OBSTRUCTIVE PULMONARY DISEASE
     Route: 055

REACTIONS (4)
  - INSOMNIA [None]
  - INCORRECT DOSE ADMINISTERED [None]
  - ARTHRITIS [None]
  - OSTEOPOROSIS [None]
